FAERS Safety Report 11121548 (Version 1)
Quarter: 2015Q2

REPORT INFORMATION
  Report Type: Report from Study
  Country: ES (occurrence: ES)
  Receive Date: 20150519
  Receipt Date: 20150519
  Transmission Date: 20150821
  Serious: Yes (Hospitalization)
  Sender: FDA-Public Use
  Company Number: ES-JNJFOC-20150505740

PATIENT

DRUGS (2)
  1. PALIPERIDONE PALMITATE [Suspect]
     Active Substance: PALIPERIDONE PALMITATE
     Indication: SCHIZOAFFECTIVE DISORDER
     Dosage: DOSE BETWEEN 50 MG AND 450 MG EVERY 4 WKS, MEAN DOSE WAS 242 MG
     Route: 030
  2. PALIPERIDONE PALMITATE [Suspect]
     Active Substance: PALIPERIDONE PALMITATE
     Indication: SCHIZOPHRENIA
     Dosage: DOSE BETWEEN 50 MG AND 450 MG EVERY 4 WKS, MEAN DOSE WAS 242 MG
     Route: 030

REACTIONS (1)
  - Mania [Unknown]
